FAERS Safety Report 5394883-9 (Version None)
Quarter: 2007Q3

REPORT INFORMATION
  Report Type: 
  Country: None (occurrence: None)
  Receive Date: 20070720
  Receipt Date: 20070710
  Transmission Date: 20080115
  Serious: Yes (Death)
  Sender: FDA-Public Use
  Company Number: GXKR2006GB03642

PATIENT
  Age: 40 Year
  Sex: Male
  Weight: 102 kg

DRUGS (6)
  1. FLUOXETINE [Suspect]
     Indication: MAJOR DEPRESSION
     Dosage: 60 MG, ORAL
     Route: 048
     Dates: start: 20040401
  2. DIAZEPAM [Suspect]
  3. TEMAZEPAM [Suspect]
  4. ZYPREXA [Suspect]
     Indication: PSYCHOTIC DISORDER
     Dosage: 20 MG, , ORAL
     Route: 048
     Dates: start: 20040401
  5. ALCOHOL (ETHANOL) [Concomitant]
  6. MIRTAZAPINE [Concomitant]

REACTIONS (4)
  - ANTIPSYCHOTIC DRUG LEVEL INCREASED [None]
  - BLOOD ALCOHOL INCREASED [None]
  - DEPRESSED LEVEL OF CONSCIOUSNESS [None]
  - RESPIRATORY DEPRESSION [None]
